FAERS Safety Report 23614842 (Version 1)
Quarter: 2024Q1

REPORT INFORMATION
  Report Type: Spontaneous
  Country: DE (occurrence: DE)
  Receive Date: 20240311
  Receipt Date: 20240311
  Transmission Date: 20240410
  Serious: Yes (Life-Threatening, Hospitalization, Disabling, Other)
  Sender: FDA-Public Use
  Company Number: DE-BRISTOL-MYERS SQUIBB COMPANY-2024-014465

PATIENT
  Age: 68 Year
  Sex: Female
  Weight: 52.5 kg

DRUGS (4)
  1. EZETIMIBE [Suspect]
     Active Substance: EZETIMIBE
     Indication: Product used for unknown indication
     Dosage: UNK
     Route: 065
  2. ELIQUIS [Suspect]
     Active Substance: APIXABAN
     Indication: Atrial fibrillation
     Dosage: 5 MG
     Route: 048
     Dates: start: 20170203, end: 20231026
  3. ALLOPURINOL [Concomitant]
     Active Substance: ALLOPURINOL
     Indication: Product used for unknown indication
     Dosage: UNK
     Route: 065
  4. JARDIANCE [Concomitant]
     Active Substance: EMPAGLIFLOZIN
     Indication: Product used for unknown indication
     Dosage: UNK
     Route: 065

REACTIONS (13)
  - Pulmonary embolism [Recovered/Resolved with Sequelae]
  - Tricuspid valve incompetence [Unknown]
  - Right ventricular enlargement [Unknown]
  - Pulmonary hypertension [Recovering/Resolving]
  - Right atrial enlargement [Unknown]
  - Skin disorder [Unknown]
  - Osteoporosis [Unknown]
  - Mitral valve incompetence [Unknown]
  - Hypertensive heart disease [Unknown]
  - Coronary artery disease [Unknown]
  - Granuloma annulare [Unknown]
  - Renal impairment [Unknown]
  - Liver disorder [Unknown]

NARRATIVE: CASE EVENT DATE: 20170201
